FAERS Safety Report 24702359 (Version 2)
Quarter: 2024Q4

REPORT INFORMATION
  Report Type: Report from Study
  Country: JP (occurrence: JP)
  Receive Date: 20241205
  Receipt Date: 20241213
  Transmission Date: 20250115
  Serious: Yes (Death)
  Sender: AKEBIA THERAPEUTICS
  Company Number: JP-MTPC-MTPC2024-0024193

PATIENT
  Age: 82 Year
  Sex: Male
  Weight: 60.3 kg

DRUGS (15)
  1. VADADUSTAT [Suspect]
     Active Substance: VADADUSTAT
     Indication: Nephrogenic anaemia
     Dosage: 300 MILLIGRAM, QD
     Route: 048
     Dates: start: 20221118, end: 20230122
  2. VADADUSTAT [Suspect]
     Active Substance: VADADUSTAT
     Dosage: 150 MILLIGRAM, QD
     Route: 048
     Dates: start: 20230123, end: 20230228
  3. LANSOPRAZOLE [Concomitant]
     Active Substance: LANSOPRAZOLE
     Indication: Illness
     Dosage: 15 MILLIGRAM, QD
     Route: 048
  4. ASPIRIN [Concomitant]
     Active Substance: ASPIRIN
     Indication: Illness
     Dosage: 100 MILLIGRAM, QD
     Route: 048
  5. CLOPIDOGREL BISULFATE [Concomitant]
     Active Substance: CLOPIDOGREL BISULFATE
     Indication: Illness
     Dosage: 75 MILLIGRAM, QD
     Route: 048
  6. LINAGLIPTIN [Concomitant]
     Active Substance: LINAGLIPTIN
     Indication: Illness
     Dosage: 5 MILLIGRAM, QD
     Route: 048
  7. EPINASTINE HYDROCHLORIDE [Concomitant]
     Active Substance: EPINASTINE HYDROCHLORIDE
     Indication: Illness
     Dosage: 20 MILLIGRAM, QD
     Route: 048
  8. AMEZINIUM METILSULFATE [Concomitant]
     Active Substance: AMEZINIUM METILSULFATE
     Indication: Illness
     Dosage: UNK, PRN
     Route: 048
  9. MEMANTINE HYDROCHLORIDE OD [Concomitant]
     Indication: Illness
     Dosage: 5 MILLIGRAM, QD
     Route: 048
  10. ACARBOSE OD [Concomitant]
     Indication: Illness
     Dosage: 300 MILLIGRAM, QD
     Route: 048
  11. PROTERNOL S [Concomitant]
     Indication: Illness
     Dosage: 45 MILLIGRAM, QD
     Route: 048
  12. AMITIZA [Concomitant]
     Active Substance: LUBIPROSTONE
     Indication: Illness
     Dosage: 24 MICROGRAM, QD
     Route: 048
  13. HERBALS [Concomitant]
     Active Substance: HERBALS
     Indication: Illness
     Dosage: 7.5 GRAM, QD
     Route: 048
  14. DROXIDOPA [Concomitant]
     Active Substance: DROXIDOPA
     Indication: Illness
     Dosage: UNK, PRN
     Route: 048
  15. GLYCERIN [Concomitant]
     Active Substance: GLYCERIN
     Indication: Illness
     Dosage: UNK, PRN
     Route: 054

REACTIONS (1)
  - Death [Fatal]
